FAERS Safety Report 17654763 (Version 2)
Quarter: 2020Q2

REPORT INFORMATION
  Report Type: Report from Study
  Country: TH (occurrence: TH)
  Receive Date: 20200410
  Receipt Date: 20200504
  Transmission Date: 20200713
  Serious: Yes (Death, Other)
  Sender: FDA-Public Use
  Company Number: TH-VIIV HEALTHCARE LIMITED-TH2020GSK061897

PATIENT
  Sex: Male

DRUGS (6)
  1. CALCIUM CARBONATE. [Suspect]
     Active Substance: CALCIUM CARBONATE
     Indication: PRODUCT USED FOR UNKNOWN INDICATION
     Dosage: 1 TABLET, QD
     Route: 064
     Dates: start: 20120312
  2. FOLIC ACID. [Suspect]
     Active Substance: FOLIC ACID
     Indication: PRODUCT USED FOR UNKNOWN INDICATION
     Dosage: 1 TABLET, QD
     Route: 064
     Dates: start: 20120312
  3. ZIDOVUDINE. [Suspect]
     Active Substance: ZIDOVUDINE
     Dosage: 300 MG EVERY THREE HOURS DURING LABOR
  4. LAMIVUDINE. [Suspect]
     Active Substance: LAMIVUDINE
     Indication: HIV INFECTION
     Dosage: 150 MG, BID
     Route: 064
     Dates: start: 20120430
  5. ZIDOVUDINE. [Suspect]
     Active Substance: ZIDOVUDINE
     Indication: HIV INFECTION
     Dosage: 300 MG, BID
     Route: 064
     Dates: start: 20120430
  6. LOPINAVIR+RITONAVIR [Suspect]
     Active Substance: LOPINAVIR\RITONAVIR
     Indication: HIV INFECTION
     Dosage: 400/100 MG TWICE A DAY
     Route: 064
     Dates: start: 20120430

REACTIONS (3)
  - Foetal exposure during pregnancy [Unknown]
  - Pyrexia [Fatal]
  - Seizure [Fatal]

NARRATIVE: CASE EVENT DATE: 20130216
